FAERS Safety Report 19120389 (Version 1)
Quarter: 2021Q2

REPORT INFORMATION
  Report Type: Spontaneous
  Country: GB (occurrence: GB)
  Receive Date: 20210412
  Receipt Date: 20210412
  Transmission Date: 20210717
  Serious: Yes (Other)
  Sender: FDA-Public Use
  Company Number: GB-AUROBINDO-08-AUR-01761

PATIENT
  Sex: Male
  Weight: 4.6 kg

DRUGS (6)
  1. FUROSEMIDE. [Suspect]
     Active Substance: FUROSEMIDE
     Indication: FALLOT^S TETRALOGY
     Dosage: 1 MILLIGRAM/KILOGRAM, ONCE A DAY
     Route: 065
  2. DIAZOXIDE [Interacting]
     Active Substance: DIAZOXIDE
     Dosage: 3 MILLIGRAM/KILOGRAM, ONCE A DAY
     Route: 065
  3. ASPIRIN. [Interacting]
     Active Substance: ASPIRIN
     Indication: FALLOT^S TETRALOGY
     Dosage: 5 MILLIGRAM/KILOGRAM, ONCE A DAY
     Route: 065
  4. DIAZOXIDE [Interacting]
     Active Substance: DIAZOXIDE
     Indication: HYPERINSULINISM
     Dosage: 5 MILLIGRAM/KILOGRAM, ONCE A DAY
     Route: 065
  5. SPIRONOLACTONE. [Suspect]
     Active Substance: SPIRONOLACTONE
     Indication: FALLOT^S TETRALOGY
     Dosage: 0.4 MILLIGRAM/KILOGRAM, ONCE A DAY
     Route: 065
  6. DIAZOXIDE [Interacting]
     Active Substance: DIAZOXIDE
     Dosage: 1.5 MILLIGRAM, ONCE A DAY (SUB?THERAPEUTIC DOSE)
     Route: 065

REACTIONS (3)
  - Hyperglycaemia [Recovered/Resolved]
  - Drug interaction [Recovered/Resolved]
  - Therapeutic product effect increased [Recovered/Resolved]
